FAERS Safety Report 8940460 (Version 4)
Quarter: 2013Q1

REPORT INFORMATION
  Report Type: Spontaneous
  Country: JP (occurrence: JP)
  Receive Date: 20121130
  Receipt Date: 20130211
  Transmission Date: 20140127
  Serious: Yes (Other)
  Sender: FDA-Public Use
  Company Number: JP-PFIZER INC-2012300289

PATIENT
  Age: 41 Year
  Sex: Male
  Weight: 58 kg

DRUGS (4)
  1. CELECOX [Suspect]
     Indication: PAIN IN EXTREMITY
     Dosage: 100 MG, 2X/DAY
     Route: 048
     Dates: start: 20121118
  2. LOBU [Suspect]
     Indication: PAIN IN EXTREMITY
     Dosage: 60 MG, 3X/DAY
     Route: 048
     Dates: start: 20121105, end: 20121117
  3. TAKEPRON [Concomitant]
     Indication: PAIN IN EXTREMITY
     Dosage: UNK
     Dates: start: 20121105
  4. ALINAMIN F [Concomitant]
     Indication: VITAMIN B1 DEFICIENCY
     Dosage: UNK
     Dates: start: 20121119

REACTIONS (1)
  - Urethral haemorrhage [Recovered/Resolved]
